FAERS Safety Report 13587789 (Version 2)
Quarter: 2017Q2

REPORT INFORMATION
  Report Type: Report from Study
  Country: None (occurrence: NL)
  Receive Date: 20170527
  Receipt Date: 20170608
  Transmission Date: 20170830
  Serious: Yes (Death)
  Sender: FDA-Public Use
  Company Number: NL-ABBVIE-17K-114-1985676-00

PATIENT
  Sex: Male

DRUGS (1)
  1. DUODOPA [Suspect]
     Active Substance: CARBIDOPA\LEVODOPA
     Indication: PARKINSON^S DISEASE
     Dosage: MORNING DOSE: 4.5,CONTINUOUS DOSS:4.6,EXTRA DOSE: 3.3,NIGHT DOSE: 3.2
     Route: 050
     Dates: start: 20150307

REACTIONS (1)
  - Euthanasia [Fatal]
